FAERS Safety Report 9137016 (Version 1)
Quarter: 2013Q1

REPORT INFORMATION
  Report Type: Spontaneous
  Country: US (occurrence: US)
  Receive Date: 20130304
  Receipt Date: 20130304
  Transmission Date: 20140127
  Serious: No
  Sender: FDA-Public Use
  Company Number: US-ABBOTT-12P-163-0929207-00

PATIENT
  Sex: Male
  Weight: 99.88 kg

DRUGS (13)
  1. ANDROGEL 1% [Suspect]
     Indication: BLOOD TESTOSTERONE DECREASED
     Dosage: 4 PUMPS, 1 IN 1 DAY
     Route: 061
     Dates: start: 20120223, end: 20120314
  2. ANDROGEL 1% [Suspect]
     Dosage: PACKETS, 1 IN 1 DAY
     Route: 061
     Dates: start: 20120126, end: 20120223
  3. ANDROGEL 1% [Suspect]
     Dosage: 2 PUMPS, 1 IN 1 DAY
     Route: 061
     Dates: start: 20120314, end: 20120404
  4. ANDROGEL 1.62% [Suspect]
     Indication: BLOOD TESTOSTERONE DECREASED
     Dosage: 2 PUMPS, 1 IN 1 DAY
     Route: 061
     Dates: start: 20120404
  5. TAMSULOSIN [Concomitant]
     Indication: PRODUCT USED FOR UNKNOWN INDICATION
     Route: 048
  6. CELLCEPT [Concomitant]
     Indication: PRODUCT USED FOR UNKNOWN INDICATION
     Route: 048
  7. PREDNISONE [Concomitant]
     Indication: PRODUCT USED FOR UNKNOWN INDICATION
     Route: 048
  8. PROGRAF [Concomitant]
     Indication: PRODUCT USED FOR UNKNOWN INDICATION
     Route: 048
  9. CRESTOR [Concomitant]
     Indication: PRODUCT USED FOR UNKNOWN INDICATION
     Route: 048
  10. BYSTOLIC [Concomitant]
     Indication: PRODUCT USED FOR UNKNOWN INDICATION
     Route: 048
  11. PANTOPRAZOLE [Concomitant]
     Indication: PRODUCT USED FOR UNKNOWN INDICATION
     Route: 048
  12. COLCORS [Concomitant]
     Indication: PRODUCT USED FOR UNKNOWN INDICATION
     Route: 048
  13. ASPIRIN [Concomitant]
     Indication: PRODUCT USED FOR UNKNOWN INDICATION
     Route: 048

REACTIONS (2)
  - Drug effect incomplete [Not Recovered/Not Resolved]
  - Blood testosterone decreased [Not Recovered/Not Resolved]
